FAERS Safety Report 8909726 (Version 1)
Quarter: 2012Q4

REPORT INFORMATION
  Report Type: Spontaneous
  Country: US (occurrence: None)
  Receive Date: 20121109
  Receipt Date: 20121109
  Transmission Date: 20130627
  Serious: Yes (Death)
  Sender: FDA-Public Use
  Company Number: QSC-2012-0288

PATIENT
  Age: 57 Year
  Sex: Male

DRUGS (1)
  1. H.P. ACTHAR [Suspect]
     Indication: PROTEINURIA
     Dosage: UNK, biw, Subcutaneous
     Route: 058
     Dates: start: 20120410, end: 20120925

REACTIONS (2)
  - Myocardial infarction [None]
  - Cardiac arrest [None]
